FAERS Safety Report 16085306 (Version 1)
Quarter: 2019Q2

REPORT INFORMATION
  Report Type: Spontaneous
  Country: US (occurrence: US)
  Receive Date: 20190318
  Receipt Date: 20190318
  Transmission Date: 20190711
  Serious: Yes (Other)
  Sender: FDA-Public Use
  Company Number: None

PATIENT
  Age: 50 Year
  Sex: Female
  Weight: 51.3 kg

DRUGS (1)
  1. BUPROPION SR [Suspect]
     Active Substance: BUPROPION HYDROCHLORIDE
     Indication: MAJOR DEPRESSION
     Route: 048
     Dates: start: 20190313, end: 20190313

REACTIONS (4)
  - Product substitution issue [None]
  - Nausea [None]
  - Product odour abnormal [None]
  - Major depression [None]

NARRATIVE: CASE EVENT DATE: 20190313
